FAERS Safety Report 5680596-2 (Version None)
Quarter: 2008Q1

REPORT INFORMATION
  Report Type: 
  Country: None (occurrence: None)
  Receive Date: 20080326
  Receipt Date: 20080307
  Transmission Date: 20080703
  Serious: Yes (Death, Other)
  Sender: FDA-Public Use
  Company Number: ES-BAYER-200815201GPV

PATIENT

DRUGS (2)
  1. FLUDARABINE [Suspect]
     Indication: NON-HODGKIN'S LYMPHOMA
     Route: 042
  2. MELPHALAN [Suspect]
     Indication: NON-HODGKIN'S LYMPHOMA
     Route: 042

REACTIONS (14)
  - ARRHYTHMIA [None]
  - BACTERAEMIA [None]
  - CARDIAC FAILURE CONGESTIVE [None]
  - CHRONIC GRAFT VERSUS HOST DISEASE [None]
  - CYSTITIS HAEMORRHAGIC [None]
  - FEBRILE NEUTROPENIA [None]
  - HEPATOTOXICITY [None]
  - INFECTION [None]
  - MENINGITIS BACTERIAL [None]
  - MUCOSAL INFLAMMATION [None]
  - PNEUMONIA BACTERIAL [None]
  - PSEUDOMONAL SEPSIS [None]
  - UROSEPSIS [None]
  - VENOOCCLUSIVE DISEASE [None]
